FAERS Safety Report 6709246-0 (Version None)
Quarter: 2010Q2

REPORT INFORMATION
  Report Type: 
  Country: None (occurrence: None)
  Receive Date: 20100503
  Receipt Date: 20100503
  Transmission Date: 20101027
  Serious: Yes (Disabling, Other)
  Sender: FDA-Public Use
  Company Number: None

PATIENT
  Sex: Male
  Weight: 68.0396 kg

DRUGS (1)
  1. ADVAIR DISKUS 250/50 [Suspect]
     Indication: ASTHMA
     Dosage: 250/50 2X INHALE
     Route: 055
     Dates: start: 20030101, end: 20091001

REACTIONS (2)
  - AMYOTROPHIC LATERAL SCLEROSIS [None]
  - WEIGHT DECREASED [None]
